FAERS Safety Report 24413019 (Version 1)
Quarter: 2024Q4

REPORT INFORMATION
  Report Type: Report from Study
  Country: BE (occurrence: BE)
  Receive Date: 20241008
  Receipt Date: 20241008
  Transmission Date: 20250115
  Serious: Yes (Other)
  Sender: JOHNSON AND JOHNSON
  Company Number: BE-JNJFOC-20241000712

PATIENT

DRUGS (1)
  1. TECVAYLI [Suspect]
     Active Substance: TECLISTAMAB-CQYV
     Indication: Plasma cell myeloma refractory
     Route: 065

REACTIONS (11)
  - Cytokine release syndrome [Unknown]
  - Immune effector cell-associated neurotoxicity syndrome [Unknown]
  - Neutropenia [Unknown]
  - Bacteraemia [Unknown]
  - Oesophageal candidiasis [Unknown]
  - Thrombocytopenia [Unknown]
  - Lymphopenia [Unknown]
  - Respiratory tract infection [Unknown]
  - COVID-19 [Unknown]
  - Influenza [Unknown]
  - Anaemia [Unknown]
